FAERS Safety Report 7559606-3 (Version None)
Quarter: 2011Q2

REPORT INFORMATION
  Report Type: 
  Country: None (occurrence: None)
  Receive Date: 20110606
  Receipt Date: 20110523
  Transmission Date: 20111010
  Serious: Yes (Other)
  Sender: FDA-Public Use
  Company Number: GB-IGSA-IG848

PATIENT
  Age: 35 Year
  Sex: Male
  Weight: 75 kg

DRUGS (3)
  1. FLEBOGAMMA 5% DIF [Suspect]
     Indication: IMMUNODEFICIENCY
     Dosage: 25 G
     Route: 042
     Dates: start: 20090801, end: 20110513
  2. FLEBOGAMMA 5% DIF [Suspect]
     Indication: THYMOMA
     Dosage: 25 G
     Route: 042
     Dates: start: 20090801, end: 20110513
  3. QUININE SULFATE [Concomitant]

REACTIONS (9)
  - HEMIPLEGIA [None]
  - TRANSIENT ISCHAEMIC ATTACK [None]
  - MUSCLE SPASMS [None]
  - PARAESTHESIA [None]
  - APHASIA [None]
  - HYPOAESTHESIA [None]
  - HEADACHE [None]
  - SENSORY LOSS [None]
  - HYPOAESTHESIA ORAL [None]
